FAERS Safety Report 6337543-X (Version None)
Quarter: 2009Q3

REPORT INFORMATION
  Report Type: 
  Country: None (occurrence: None)
  Receive Date: 20090902
  Receipt Date: 20090826
  Transmission Date: 20100115
  Serious: Yes (Other)
  Sender: FDA-Public Use
  Company Number: US-AMGEN-KDL360628

PATIENT
  Sex: Male
  Weight: 68.6 kg

DRUGS (4)
  1. ENBREL [Suspect]
     Indication: RHEUMATOID ARTHRITIS
     Route: 058
     Dates: start: 20090714, end: 20090819
  2. METHOTREXATE [Concomitant]
     Dates: start: 20090326
  3. FOLIC ACID [Concomitant]
     Dates: start: 20090326
  4. PREDNISONE [Concomitant]
     Dates: start: 20090317

REACTIONS (5)
  - DECREASED APPETITE [None]
  - DIZZINESS [None]
  - DRY MOUTH [None]
  - HEADACHE [None]
  - VISION BLURRED [None]
